FAERS Safety Report 4982722-7 (Version None)
Quarter: 2006Q2

REPORT INFORMATION
  Report Type: 
  Country: None (occurrence: None)
  Receive Date: 20060425
  Receipt Date: 20051019
  Transmission Date: 20061013
  Serious: Yes (Hospitalization, Other)
  Sender: FDA-Public Use
  Company Number: US-MERCK-0510USA08172

PATIENT
  Age: 58 Year
  Sex: Male

DRUGS (1)
  1. VIOXX [Suspect]
     Route: 048
     Dates: start: 20010101, end: 20040901

REACTIONS (10)
  - ABSCESS [None]
  - ANAEMIA [None]
  - CEREBROVASCULAR ACCIDENT [None]
  - DIABETES MELLITUS [None]
  - HAEMORRHAGE [None]
  - HYPERLIPIDAEMIA [None]
  - HYPERTENSION [None]
  - LABYRINTHITIS [None]
  - RENAL FAILURE [None]
  - TRANSIENT ISCHAEMIC ATTACK [None]
